FAERS Safety Report 10216873 (Version 2)
Quarter: 2014Q2

REPORT INFORMATION
  Report Type: Spontaneous
  Country: FR (occurrence: FR)
  Receive Date: 20140604
  Receipt Date: 20140618
  Transmission Date: 20141212
  Serious: Yes (Hospitalization)
  Sender: FDA-Public Use
  Company Number: FR-ELI_LILLY_AND_COMPANY-FR201405008633

PATIENT
  Age: 65 Year
  Sex: Male

DRUGS (1)
  1. FORSTEO [Suspect]
     Indication: PRODUCT USED FOR UNKNOWN INDICATION
     Dosage: UNK
     Route: 058
     Dates: start: 201404

REACTIONS (4)
  - Vertigo [Unknown]
  - Nausea [Unknown]
  - Pain in extremity [Unknown]
  - Palpitations [Unknown]
